FAERS Safety Report 24656368 (Version 1)
Quarter: 2024Q4

REPORT INFORMATION
  Report Type: Spontaneous
  Country: US (occurrence: US)
  Receive Date: 20241124
  Receipt Date: 20241124
  Transmission Date: 20250115
  Serious: Yes (Disabling)
  Sender: GILEAD
  Company Number: US-GILEAD-2024-0694607

PATIENT
  Sex: Female

DRUGS (2)
  1. LENACAPAVIR [Suspect]
     Active Substance: LENACAPAVIR
     Indication: HIV infection
     Dosage: 927 MG,  (2 X 1.5ML) UNDER THE SKIN IN 2 SEPARATE SITES EVERY 6 MONTHS
     Route: 058
  2. LENACAPAVIR [Suspect]
     Active Substance: LENACAPAVIR
     Dosage: 2 DOSAGE FORM, 1 TIME A DAY ON DAY 1 AND DAY 2.
     Route: 048

REACTIONS (1)
  - Confusional state [Unknown]
